FAERS Safety Report 9745732 (Version 2)
Quarter: 2013Q4

REPORT INFORMATION
  Report Type: Spontaneous
  Country: AR (occurrence: AR)
  Receive Date: 20131211
  Receipt Date: 20131220
  Transmission Date: 20140711
  Serious: Yes (Other)
  Sender: FDA-Public Use
  Company Number: AR-INCYTE CORPORATION-2013IN002919

PATIENT
  Age: 40 Year
  Sex: Female

DRUGS (2)
  1. JAKAVI [Suspect]
     Indication: MYELOFIBROSIS
     Dosage: 5 MG, 8/DAY
     Dates: start: 201202, end: 201308
  2. JAKAVI [Suspect]
     Dosage: 5 MG, 4/DAY
     Route: 048
     Dates: start: 201308

REACTIONS (11)
  - Abdominal discomfort [Not Recovered/Not Resolved]
  - Varicose vein ruptured [Recovering/Resolving]
  - Pain [Recovering/Resolving]
  - Haemorrhage [Recovering/Resolving]
  - Tumour pain [Not Recovered/Not Resolved]
  - Scoliosis [Not Recovered/Not Resolved]
  - Osteoarthritis [Not Recovered/Not Resolved]
  - Anaemia [Not Recovered/Not Resolved]
  - Anxiety [Not Recovered/Not Resolved]
  - Erythema [Unknown]
  - Haematoma [Unknown]
